FAERS Safety Report 5588245-9 (Version None)
Quarter: 2008Q1

REPORT INFORMATION
  Report Type: 
  Country: None (occurrence: None)
  Receive Date: 20080111
  Receipt Date: 20080110
  Transmission Date: 20080703
  Serious: Yes (Death)
  Sender: FDA-Public Use
  Company Number: US-BRISTOL-MYERS SQUIBB COMPANY-13648241

PATIENT
  Age: 52 Year
  Sex: Female

DRUGS (4)
  1. GLUCOVANCE [Suspect]
     Indication: TYPE 2 DIABETES MELLITUS
     Dosage: THERAPY DURATION=APPROX.6 MONTHS,LOT NO.+EXP:4L79465,30NOV07;4F80284,31AUG07;4E84008,30APR07.
     Route: 048
     Dates: start: 20041223
  2. SYNTHROID [Concomitant]
     Dates: start: 19970101
  3. CELEXA [Concomitant]
     Dates: start: 20020101
  4. LEVOXYL [Concomitant]

REACTIONS (1)
  - DEATH [None]
